FAERS Safety Report 9660269 (Version 2)
Quarter: 2013Q4

REPORT INFORMATION
  Report Type: Spontaneous
  Country: US (occurrence: US)
  Receive Date: 20131031
  Receipt Date: 20131031
  Transmission Date: 20140711
  Serious: Yes (Death, Other)
  Sender: FDA-Public Use
  Company Number: US-NAPPMUNDI-USA-2011-0062315

PATIENT
  Age: 25 Year
  Sex: Male
  Weight: 114.29 kg

DRUGS (1)
  1. OXYCODONE HYDROCHLORIDE (SIMILAR TO NDA 20-553) [Suspect]
     Indication: DRUG ABUSE

REACTIONS (3)
  - Accidental overdose [Fatal]
  - Drug abuse [Unknown]
  - Convulsion [Unknown]
